FAERS Safety Report 6671549-6 (Version None)
Quarter: 2010Q2

REPORT INFORMATION
  Report Type: 
  Country: None (occurrence: None)
  Receive Date: 20100407
  Receipt Date: 20100402
  Transmission Date: 20101027
  Serious: Yes (Other)
  Sender: FDA-Public Use
  Company Number: US-BRISTOL-MYERS SQUIBB COMPANY-15042484

PATIENT

DRUGS (2)
  1. BARACLUDE [Suspect]
  2. TENOFOVIR [Suspect]

REACTIONS (1)
  - LACTIC ACIDOSIS [None]
